FAERS Safety Report 16710845 (Version 1)
Quarter: 2019Q3

REPORT INFORMATION
  Report Type: Report from Study
  Country: IT (occurrence: IT)
  Receive Date: 20190816
  Receipt Date: 20190816
  Transmission Date: 20191004
  Serious: Yes (Other)
  Sender: FDA-Public Use
  Company Number: IT-ROCHE-2379225

PATIENT

DRUGS (4)
  1. OFATUMUMAB [Suspect]
     Active Substance: OFATUMUMAB
     Indication: NEPHROTIC SYNDROME
     Dosage: 1,500 MG/1.73 M2
     Route: 065
  2. MYCOPHENOLATE MOFETIL. [Suspect]
     Active Substance: MYCOPHENOLATE MOFETIL
     Indication: NEPHROTIC SYNDROME
     Route: 048
  3. PREDNISONE. [Suspect]
     Active Substance: PREDNISONE
     Indication: NEPHROTIC SYNDROME
     Route: 048
  4. RITUXIMAB. [Suspect]
     Active Substance: RITUXIMAB
     Indication: NEPHROTIC SYNDROME
     Dosage: AT THE FIRST INFUSION
     Route: 041

REACTIONS (21)
  - Pneumonia [Unknown]
  - Lymphadenopathy [Unknown]
  - Respiratory tract infection [Unknown]
  - Obesity [Unknown]
  - Osteopenia [Unknown]
  - Subcutaneous abscess [Unknown]
  - Human herpesvirus 6 infection [Unknown]
  - Ear infection [Unknown]
  - Leukopenia [Unknown]
  - Selective IgA immunodeficiency [Unknown]
  - Encephalitis [Unknown]
  - Thrombocytopenia [Unknown]
  - Dyspnoea [Unknown]
  - Helicobacter gastritis [Unknown]
  - Epstein-Barr virus infection [Unknown]
  - Adenoma benign [Unknown]
  - Herpes zoster [Unknown]
  - Rash [Unknown]
  - Hypogammaglobulinaemia [Unknown]
  - Irritable bowel syndrome [Unknown]
  - Blood immunoglobulin M decreased [Unknown]
